FAERS Safety Report 20443217 (Version 1)
Quarter: 2022Q1

REPORT INFORMATION
  Report Type: Spontaneous
  Country: CA (occurrence: CA)
  Receive Date: 20220208
  Receipt Date: 20220208
  Transmission Date: 20220423
  Serious: Yes (Other)
  Sender: FDA-Public Use
  Company Number: CA-BAYER-2022A019237

PATIENT
  Age: 33 Year
  Sex: Female

DRUGS (1)
  1. MIRENA [Suspect]
     Active Substance: LEVONORGESTREL
     Dosage: 20?G/DAY
     Route: 015
     Dates: start: 202004, end: 20211217

REACTIONS (4)
  - Suicidal ideation [None]
  - Psychotic disorder [None]
  - Mood swings [Recovered/Resolved]
  - Anxiety [None]

NARRATIVE: CASE EVENT DATE: 20200101
